FAERS Safety Report 4630518-8 (Version None)
Quarter: 2005Q2

REPORT INFORMATION
  Report Type: 
  Country: None (occurrence: None)
  Receive Date: 20050408
  Receipt Date: 20040220
  Transmission Date: 20051028
  Serious: Yes (Other)
  Sender: FDA-Public Use
  Company Number: US-GLAXOSMITHKLINE-A0501660A

PATIENT
  Sex: Male
  Weight: 87 kg

DRUGS (3)
  1. PAXIL [Suspect]
     Indication: ANXIETY
     Dosage: 20MG PER DAY
     Route: 048
     Dates: start: 19990101
  2. PAXIL CR [Concomitant]
     Indication: ANXIETY
     Dosage: 25MG PER DAY
     Route: 048
     Dates: start: 20030301, end: 20040101
  3. XANAX [Concomitant]
     Indication: ANXIETY
     Dosage: .5MG AS REQUIRED
     Route: 048
     Dates: start: 20010101

REACTIONS (18)
  - AGGRESSION [None]
  - AGITATION [None]
  - ANXIETY [None]
  - CONFUSIONAL STATE [None]
  - DEPRESSION [None]
  - DIARRHOEA [None]
  - DISABILITY [None]
  - DISTURBANCE IN ATTENTION [None]
  - DIZZINESS [None]
  - DRUG INEFFECTIVE [None]
  - DRUG WITHDRAWAL SYNDROME [None]
  - MARITAL PROBLEM [None]
  - MEMORY IMPAIRMENT [None]
  - MOOD SWINGS [None]
  - NERVOUSNESS [None]
  - TREATMENT NONCOMPLIANCE [None]
  - TREMOR [None]
  - VERTIGO [None]
